FAERS Safety Report 13415103 (Version 3)
Quarter: 2017Q4

REPORT INFORMATION
  Report Type: Spontaneous
  Country: US (occurrence: US)
  Receive Date: 20170407
  Receipt Date: 20171107
  Transmission Date: 20180320
  Serious: Yes (Hospitalization, Other)
  Sender: FDA-Public Use
  Company Number: US-VIFOR (INTERNATIONAL) INC.-VIT-2017-03549

PATIENT
  Age: 73 Year
  Sex: Female
  Weight: 49.94 kg

DRUGS (23)
  1. CARISOPRODOL. [Concomitant]
     Active Substance: CARISOPRODOL
  2. ONDANSETRON HYDROCHLORIDE. [Concomitant]
     Active Substance: ONDANSETRON HYDROCHLORIDE
  3. GABAPENTIN. [Concomitant]
     Active Substance: GABAPENTIN
  4. HYDRALAZINE HYDROCHLORIDE. [Concomitant]
     Active Substance: HYDRALAZINE HYDROCHLORIDE
  5. LEVOTHYROXINE SODIUM. [Concomitant]
     Active Substance: LEVOTHYROXINE SODIUM
  6. QUETIAPINE FUMARATE. [Concomitant]
     Active Substance: QUETIAPINE FUMARATE
  7. ACETYLSALICYLIC ACID [Concomitant]
     Active Substance: ASPIRIN
  8. FOLIC ACID. [Concomitant]
     Active Substance: FOLIC ACID
  9. HUMALOG KWIKPEN [Concomitant]
     Active Substance: INSULIN LISPRO
  10. LEVEMIR [Concomitant]
     Active Substance: INSULIN DETEMIR
  11. PANTOPRAZOLE SODIUM SESQUIHYDRATE [Concomitant]
     Active Substance: PANTOPRAZOLE SODIUM
  12. BACLOFEN. [Concomitant]
     Active Substance: BACLOFEN
  13. ENALAPRIL MALEATE. [Concomitant]
     Active Substance: ENALAPRIL MALEATE
  14. FERROUS SULFATE. [Concomitant]
     Active Substance: FERROUS SULFATE
  15. LORATADINE. [Concomitant]
     Active Substance: LORATADINE
  16. SODIUM BICARBONATE. [Concomitant]
     Active Substance: SODIUM BICARBONATE
  17. CREON [Concomitant]
     Active Substance: PANCRELIPASE AMYLASE\PANCRELIPASE LIPASE\PANCRELIPASE PROTEASE
  18. OXYCODONE HYDROCHLORIDE. [Concomitant]
     Active Substance: OXYCODONE HYDROCHLORIDE
  19. BIPHASIC [Concomitant]
  20. ULORIC [Concomitant]
     Active Substance: FEBUXOSTAT
  21. VELTASSA [Suspect]
     Active Substance: PATIROMER
     Indication: HYPERKALAEMIA
     Route: 048
     Dates: start: 20160407
  22. LORAZEPAM. [Concomitant]
     Active Substance: LORAZEPAM
  23. AMLODIPINE BESILATE [Concomitant]
     Active Substance: AMLODIPINE BESYLATE

REACTIONS (11)
  - Infection [Recovered/Resolved]
  - Blood potassium increased [Recovered/Resolved]
  - Ileostomy [Unknown]
  - Epistaxis [Recovered/Resolved]
  - Cardiac valve disease [Unknown]
  - Cystitis [Not Recovered/Not Resolved]
  - Blood glucose increased [Recovered/Resolved]
  - Pancreatic carcinoma [Unknown]
  - Post procedural drainage [Recovered/Resolved]
  - Product availability issue [Unknown]
  - Sepsis [Unknown]

NARRATIVE: CASE EVENT DATE: 20170330
